FAERS Safety Report 6747166-6 (Version None)
Quarter: 2010Q2

REPORT INFORMATION
  Report Type: 
  Country: None (occurrence: None)
  Receive Date: 20100526
  Receipt Date: 20100513
  Transmission Date: 20101027
  Serious: Yes (Hospitalization, Other)
  Sender: FDA-Public Use
  Company Number: 2010AP001020

PATIENT
  Age: 75 Year
  Sex: Male

DRUGS (8)
  1. SOTALOL HCL [Suspect]
     Dosage: 7200 MG
  2. ISOSORBIDE MONONITRATE [Suspect]
     Dosage: 6000 MG
  3. PERINDOPRIL ERBUMINE [Suspect]
     Dosage: 200 MG
  4. FUROSEMIDE [Suspect]
     Dosage: 800 MG
  5. AMLODIPINE BESYLATE [Suspect]
     Dosage: 300 MG
  6. DIGOXIN [Suspect]
     Dosage: 7.125 MG
  7. ACENOCOUMAROL (ACENOCOUMAROL) [Suspect]
     Dosage: 98 MG
  8. ATORVASTATIN CALCIUM [Suspect]
     Dosage: 1200 MG

REACTIONS (9)
  - ANURIA [None]
  - CARDIOGENIC SHOCK [None]
  - DISORIENTATION [None]
  - DRUG TOXICITY [None]
  - ELECTROCARDIOGRAM QRS COMPLEX PROLONGED [None]
  - ELECTROCARDIOGRAM QT PROLONGED [None]
  - HEART RATE INCREASED [None]
  - MULTIPLE DRUG OVERDOSE [None]
  - RENAL FAILURE [None]
